FAERS Safety Report 20109269 (Version 1)
Quarter: 2021Q4

REPORT INFORMATION
  Report Type: Spontaneous
  Country: US (occurrence: None)
  Receive Date: 20211124
  Receipt Date: 20211124
  Transmission Date: 20220303
  Serious: Yes (Other)
  Sender: FDA-Public Use
  Company Number: None

PATIENT
  Age: 72 Year
  Sex: Female
  Weight: 75.6 kg

DRUGS (9)
  1. IBRANCE [Suspect]
     Active Substance: PALBOCICLIB
     Indication: Breast cancer
     Dosage: FREQUENCY : DAILY;?
     Route: 048
     Dates: start: 20210727, end: 20211124
  2. NOVOLIN R [Concomitant]
     Active Substance: INSULIN HUMAN
  3. VITAMIN D [Concomitant]
     Active Substance: VITAMIN D NOS
  4. ASPIRIN [Concomitant]
     Active Substance: ASPIRIN
  5. COUMADIN [Concomitant]
     Active Substance: WARFARIN SODIUM
  6. LEVEMIR [Concomitant]
     Active Substance: INSULIN DETEMIR
  7. METOPROLOL [Concomitant]
     Active Substance: METOPROLOL
  8. Covid-10 MRNA vaccine [Concomitant]
  9. fluxone quadrivalent [Concomitant]

REACTIONS (1)
  - Vaginal infection [None]

NARRATIVE: CASE EVENT DATE: 20211124
